FAERS Safety Report 9147545 (Version 1)
Quarter: 2013Q1

REPORT INFORMATION
  Report Type: Spontaneous
  Country: US (occurrence: US)
  Receive Date: 20130307
  Receipt Date: 20130307
  Transmission Date: 20140127
  Serious: No
  Sender: FDA-Public Use
  Company Number: US-PFIZER INC-2013075103

PATIENT
  Age: 72 Year
  Sex: Female
  Weight: 68.9 kg

DRUGS (4)
  1. EFFEXOR XR [Suspect]
     Indication: DEPRESSION
     Dosage: 150 MG, DAILY
     Dates: end: 2013
  2. NEXIUM [Concomitant]
     Indication: HERNIA
     Dosage: 40 MG, DAILY
  3. ACETAMINOPHEN W/OXYCODONE [Concomitant]
     Indication: PAIN
     Dosage: 10/325 MG FOUR A DAY
  4. LEVOTHYROXINE [Concomitant]
     Indication: THYROID DISORDER
     Dosage: 88 UG, DAILY

REACTIONS (3)
  - Sensation of heaviness [Not Recovered/Not Resolved]
  - Crying [Not Recovered/Not Resolved]
  - Gait disturbance [Not Recovered/Not Resolved]
